FAERS Safety Report 16195201 (Version 1)
Quarter: 2019Q2

REPORT INFORMATION
  Report Type: Spontaneous
  Country: CN (occurrence: CN)
  Receive Date: 20190415
  Receipt Date: 20190415
  Transmission Date: 20190711
  Serious: Yes (Other)
  Sender: FDA-Public Use
  Company Number: CN-ROCHE-2293331

PATIENT
  Age: 60 Year
  Sex: Male

DRUGS (6)
  1. FLUOROURACIL. [Concomitant]
     Active Substance: FLUOROURACIL
     Indication: RECTAL CANCER
  2. XELODA [Suspect]
     Active Substance: CAPECITABINE
     Indication: GASTRIC CANCER
     Route: 048
  3. OXALIPLATIN. [Concomitant]
     Active Substance: OXALIPLATIN
     Indication: RECTAL CANCER
  4. FLUOROURACIL. [Concomitant]
     Active Substance: FLUOROURACIL
     Indication: GASTRIC CANCER
     Dosage: FROM DAY1 TO DAY14
     Route: 048
  5. XELODA [Suspect]
     Active Substance: CAPECITABINE
     Indication: RECTAL CANCER
  6. OXALIPLATIN. [Concomitant]
     Active Substance: OXALIPLATIN
     Indication: GASTRIC CANCER
     Dosage: DAY1
     Route: 041

REACTIONS (7)
  - Bladder disorder [Unknown]
  - Pleural effusion [Unknown]
  - Pelvic inflammatory disease [Unknown]
  - Spinal osteoarthritis [Unknown]
  - Accessory spleen [Unknown]
  - Pneumonitis [Unknown]
  - Inflammation [Unknown]

NARRATIVE: CASE EVENT DATE: 20180430
